FAERS Safety Report 13485344 (Version 1)
Quarter: 2017Q2

REPORT INFORMATION
  Report Type: Spontaneous
  Country: US (occurrence: US)
  Receive Date: 20170426
  Receipt Date: 20170426
  Transmission Date: 20170830
  Serious: No
  Sender: FDA-Public Use
  Company Number: US-JNJFOC-20170411508

PATIENT
  Age: 58 Year
  Sex: Female
  Weight: 72.58 kg

DRUGS (1)
  1. TYLENOL EXTRA STRENGTH [Suspect]
     Active Substance: ACETAMINOPHEN
     Indication: HEADACHE
     Dosage: 1 CAPLET THEN 2 HOURS LATER ANOTHER
     Route: 048
     Dates: start: 20170408

REACTIONS (4)
  - Drug ineffective [Unknown]
  - Incorrect dose administered [Unknown]
  - Expired product administered [Unknown]
  - Inappropriate schedule of drug administration [Unknown]

NARRATIVE: CASE EVENT DATE: 20170408
